FAERS Safety Report 17371448 (Version 1)
Quarter: 2020Q1

REPORT INFORMATION
  Report Type: Spontaneous
  Country: ES (occurrence: ES)
  Receive Date: 20200205
  Receipt Date: 20200205
  Transmission Date: 20200409
  Serious: Yes (Other)
  Sender: FDA-Public Use
  Company Number: ES-AXELLIA-002964

PATIENT
  Age: 46 Year
  Sex: Female

DRUGS (6)
  1. FLUOROMETHOLONE/FLUOROMETHOLONE ACETATE [Concomitant]
     Indication: STAPHYLOCOCCAL INFECTION
     Dosage: DROPS
     Route: 047
  2. TOBRAMYCIN. [Suspect]
     Active Substance: TOBRAMYCIN
     Indication: STAPHYLOCOCCAL INFECTION
  3. FLUOROMETHOLONE. [Concomitant]
     Active Substance: FLUOROMETHOLONE
     Indication: STREPTOCOCCAL INFECTION
     Dosage: DROPS
     Route: 047
  4. VANCOMYCIN [Concomitant]
     Active Substance: VANCOMYCIN
     Indication: STAPHYLOCOCCAL INFECTION
     Dosage: DROPS, FORTIFIED
     Route: 047
  5. TOBRAMYCIN. [Suspect]
     Active Substance: TOBRAMYCIN
     Indication: STREPTOCOCCAL INFECTION
  6. VANCOMYCIN [Concomitant]
     Active Substance: VANCOMYCIN
     Indication: STREPTOCOCCAL INFECTION
     Dosage: DROPS, FORTIFIED
     Route: 047

REACTIONS (1)
  - Ocular surface disease [Unknown]
